FAERS Safety Report 6386876-X (Version None)
Quarter: 2009Q4

REPORT INFORMATION
  Report Type: 
  Country: None (occurrence: None)
  Receive Date: 20091002
  Receipt Date: 20090922
  Transmission Date: 20100525
  Serious: Yes (Other)
  Sender: FDA-Public Use
  Company Number: US-CELGENEUS-163-21880-09091730

PATIENT
  Sex: Female

DRUGS (10)
  1. REVLIMID [Suspect]
     Indication: PLASMACYTOMA
     Route: 048
     Dates: start: 20080717, end: 20090914
  2. AMLODIPINE [Concomitant]
     Indication: HYPERTENSION
     Route: 065
  3. CALCIUM [Concomitant]
     Route: 065
  4. VITAMIN D [Concomitant]
     Route: 065
  5. DEXAMETHASONE 0.5MG TAB [Concomitant]
     Indication: PLASMACYTOMA
     Route: 065
  6. VICODIN [Concomitant]
     Indication: PAIN
     Dosage: 1-2 TABLETS
     Route: 048
  7. PREVACID [Concomitant]
     Indication: PROPHYLAXIS
     Route: 065
  8. PENTAMIDINE ISETHIONATE [Concomitant]
     Indication: PROPHYLAXIS
     Route: 055
  9. POTASSIUM CHLORIDE [Concomitant]
     Route: 065
  10. MAGNESIUM [Concomitant]
     Route: 065

REACTIONS (1)
  - PREGNANCY [None]
